FAERS Safety Report 8708498 (Version 2)
Quarter: 2012Q4

REPORT INFORMATION
  Report Type: Report from Study
  Country: CA (occurrence: CA)
  Receive Date: 20120806
  Receipt Date: 20121204
  Transmission Date: 20130627
  Serious: Yes (Hospitalization, Other)
  Sender: FDA-Public Use
  Company Number: CA-SANOFI-AVENTIS-2012SA054102

PATIENT
  Age: 51 Year
  Sex: Male

DRUGS (28)
  1. OXALIPLATIN [Suspect]
     Dosage: every 3 weeks
     Route: 041
     Dates: start: 20120321, end: 20120321
  2. OXALIPLATIN [Suspect]
     Dosage: every 3 weeks
     Route: 041
     Dates: start: 2012, end: 2012
  3. OXALIPLATIN [Suspect]
     Dosage: every 3 weeks
     Route: 041
     Dates: start: 20120627, end: 20120627
  4. IRINOTECAN [Suspect]
     Dosage: every 3 weeks
     Route: 042
     Dates: start: 20120321, end: 20120321
  5. IRINOTECAN [Suspect]
     Route: 042
     Dates: start: 2012, end: 2012
  6. IRINOTECAN [Suspect]
     Route: 042
     Dates: start: 20120627, end: 20120627
  7. XELODA [Suspect]
     Dosage: 2 times a day for 14 days
     Route: 048
     Dates: start: 20120322, end: 20120627
  8. PARACETAMOL [Concomitant]
     Indication: PAIN MANAGEMENT
     Dosage: regular strength
     Route: 048
     Dates: start: 20120316
  9. ADVIL [Concomitant]
     Indication: PAIN MANAGEMENT
     Route: 048
     Dates: start: 20120320
  10. PANTOPRAZOLE [Concomitant]
     Indication: ACID REFLUX (ESOPHAGEAL)
     Route: 048
     Dates: start: 20120102
  11. AMINO ACIDS NOS/MINERALS NOS/VITAMINS NOS [Concomitant]
     Indication: NUTRITIONAL SUPPLEMENT
     Dosage: 1 can daily
     Route: 048
     Dates: start: 20120301
  12. VITAMIN B12 [Concomitant]
     Indication: VITAMIN B12 INCREASED
     Route: 030
     Dates: start: 19980101
  13. IMMUNE SERUM GLOBULIN [Concomitant]
     Indication: UNSPECIFIED IMMUNITY DEFICIENCY
     Route: 042
     Dates: start: 20060101
  14. COLACE [Concomitant]
     Indication: CONSTIPATION
     Route: 048
     Dates: start: 20120323
  15. SENNA [Concomitant]
     Indication: CONSTIPATION
     Route: 048
     Dates: start: 20120323
  16. MAXERAN [Concomitant]
     Indication: PREMEDICATION
     Dosage: 1 hour pre-chemotherapy as needed
     Route: 048
     Dates: start: 20120321
  17. MAXERAN [Concomitant]
     Indication: NAUSEA PROPHYLAXIS
     Dosage: 1 hour pre-chemotherapy as needed
     Route: 048
     Dates: start: 20120321
  18. MAXERAN [Concomitant]
     Indication: PREMEDICATION
     Dosage: as needed for nausea prophylaxis
     Route: 048
     Dates: start: 20120321
  19. MAXERAN [Concomitant]
     Indication: NAUSEA PROPHYLAXIS
     Dosage: as needed for nausea prophylaxis
     Route: 048
     Dates: start: 20120321
  20. ZOFRAN [Concomitant]
     Indication: NAUSEA PROPHYLAXIS
     Route: 048
     Dates: start: 20120321
  21. ZOFRAN [Concomitant]
     Indication: PREMEDICATION
     Route: 048
     Dates: start: 20120321
  22. DEXAMETHASONE [Concomitant]
     Indication: NAUSEA PROPHYLAXIS
     Route: 048
     Dates: start: 20120321
  23. DEXAMETHASONE [Concomitant]
     Indication: PREMEDICATION
     Route: 048
     Dates: start: 20120321
  24. ATROPINE [Concomitant]
     Indication: PREMEDICATION
     Route: 058
     Dates: start: 20120321
  25. MACROGOL [Concomitant]
     Indication: CONSTIPATION
     Route: 048
     Dates: start: 20120528
  26. MOTILIUM [Concomitant]
     Indication: INDIGESTION
     Route: 048
     Dates: start: 20120528
  27. MOTILIUM [Concomitant]
     Indication: NAUSEA PROPHYLAXIS
     Route: 048
     Dates: start: 20120528
  28. TUMS [Concomitant]
     Indication: INDIGESTION
     Dosage: 1 to 2 tablets as needed
     Route: 048

REACTIONS (3)
  - Supraventricular tachycardia [Not Recovered/Not Resolved]
  - Hypokalaemia [Not Recovered/Not Resolved]
  - Hypokalaemia [Not Recovered/Not Resolved]
